FAERS Safety Report 14881496 (Version 2)
Quarter: 2018Q4

REPORT INFORMATION
  Report Type: Spontaneous
  Country: PL (occurrence: PL)
  Receive Date: 20180511
  Receipt Date: 20181003
  Transmission Date: 20190204
  Serious: Yes (Hospitalization, Other)
  Sender: FDA-Public Use
  Company Number: PL-PFIZER INC-2018187249

PATIENT
  Age: 59 Year
  Sex: Male

DRUGS (6)
  1. PREDNISONE. [Suspect]
     Active Substance: PREDNISONE
     Indication: IMMUNOSUPPRESSANT DRUG THERAPY
     Dosage: INITIALLY IN INDUCTION
  2. SULFASALAZINE. [Suspect]
     Active Substance: SULFASALAZINE
     Indication: IMMUNOSUPPRESSANT DRUG THERAPY
     Dosage: UNK
  3. CYCLOSPORIN A [Suspect]
     Active Substance: CYCLOSPORINE
     Dosage: LATER IN MAINTENANCE DOSES
  4. CYCLOSPORIN A [Suspect]
     Active Substance: CYCLOSPORINE
     Indication: IMMUNOSUPPRESSANT DRUG THERAPY
     Dosage: INITIALLY IN INDUCTION
  5. PREDNISONE. [Suspect]
     Active Substance: PREDNISONE
     Dosage: 15 MG, UNK
  6. PREDNISONE. [Suspect]
     Active Substance: PREDNISONE
     Dosage: 30 MG, 1X/DAY

REACTIONS (4)
  - Drug ineffective [Unknown]
  - Klebsiella infection [Recovering/Resolving]
  - Candida infection [Recovering/Resolving]
  - Polychondritis [Recovering/Resolving]

NARRATIVE: CASE EVENT DATE: 201505
